FAERS Safety Report 10337295 (Version 2)
Quarter: 2014Q3

REPORT INFORMATION
  Report Type: Report from Study
  Country: BR (occurrence: BR)
  Receive Date: 20140723
  Receipt Date: 20140821
  Transmission Date: 20150326
  Serious: Yes (Other)
  Sender: FDA-Public Use
  Company Number: PHHY2014BR087760

PATIENT
  Sex: Female
  Weight: 54 kg

DRUGS (6)
  1. GLIFAGE [Suspect]
     Active Substance: METFORMIN HYDROCHLORIDE
     Indication: DIABETES MELLITUS
     Dosage: UNK UKN, UNK
     Dates: start: 200902, end: 200908
  2. GALVUS [Suspect]
     Active Substance: VILDAGLIPTIN
     Indication: DIABETES MELLITUS
     Dosage: 2 DF DAILY
     Dates: start: 200908
  3. VYTORIN [Suspect]
     Active Substance: EZETIMIBE\SIMVASTATIN
     Indication: BLOOD TRIGLYCERIDES
     Dosage: 1 DF DAILY
  4. GALVUS MET [Suspect]
     Active Substance: METFORMIN HYDROCHLORIDE\VILDAGLIPTIN
     Dosage: 2 DF DAILY
  5. PURAN [Suspect]
     Active Substance: LEVOTHYROXINE SODIUM
     Indication: THYROID DISORDER
     Dosage: 1 DF DAILY
  6. SIMVASTATIN. [Suspect]
     Active Substance: SIMVASTATIN
     Indication: BLOOD CHOLESTEROL ABNORMAL
     Dosage: 1 DF DAILY

REACTIONS (14)
  - Hiatus hernia [Unknown]
  - Body height decreased [Unknown]
  - Gastrooesophageal reflux disease [Recovered/Resolved]
  - Nerve compression [Recovering/Resolving]
  - Osteoporosis [Unknown]
  - Weight decreased [Unknown]
  - Pain in extremity [Recovering/Resolving]
  - Hyperglycaemia [Unknown]
  - Osteoarthritis [Unknown]
  - Spinal disorder [Recovering/Resolving]
  - Dysphagia [Unknown]
  - Vein disorder [Unknown]
  - Insomnia [Unknown]
  - Suture rupture [Unknown]
